FAERS Safety Report 20190566 (Version 1)
Quarter: 2021Q4

REPORT INFORMATION
  Report Type: Spontaneous
  Country: US (occurrence: None)
  Receive Date: 20211216
  Receipt Date: 20211216
  Transmission Date: 20220303
  Serious: No
  Sender: FDA-Public Use
  Company Number: US-MDD US Operations-2020SUP00782

PATIENT
  Sex: Male

DRUGS (2)
  1. TROKENDI XR [Suspect]
     Active Substance: TOPIRAMATE
     Indication: Migraine
     Dosage: UNK
     Dates: start: 2018
  2. TROKENDI XR [Suspect]
     Active Substance: TOPIRAMATE

REACTIONS (3)
  - Bradyphrenia [Unknown]
  - Therapeutic product effect incomplete [Unknown]
  - Aphasia [Unknown]
